FAERS Safety Report 4889628-2 (Version None)
Quarter: 2006Q1

REPORT INFORMATION
  Report Type: 
  Country: None (occurrence: None)
  Receive Date: 20060124
  Receipt Date: 20051208
  Transmission Date: 20060701
  Serious: Yes (Other)
  Sender: FDA-Public Use
  Company Number: NL-GLAXOSMITHKLINE-B0403196A

PATIENT
  Age: 78 Year
  Sex: Female

DRUGS (3)
  1. SALMETEROL [Suspect]
     Indication: ASTHMA
     Dosage: 25MCG UNKNOWN
     Route: 065
  2. FLUTICASONE PROPIONATE [Suspect]
     Indication: ASTHMA
     Dosage: 50MCG UNKNOWN
     Route: 065
  3. ATROVENT [Concomitant]
     Route: 055

REACTIONS (4)
  - ASTHMA [None]
  - DYSPHONIA [None]
  - ILL-DEFINED DISORDER [None]
  - NASOPHARYNGEAL DISORDER [None]
